FAERS Safety Report 12336513 (Version 12)
Quarter: 2017Q1

REPORT INFORMATION
  Report Type: Report from Study
  Country: BR (occurrence: BR)
  Receive Date: 20160505
  Receipt Date: 20170127
  Transmission Date: 20170428
  Serious: Yes (Hospitalization, Other)
  Sender: FDA-Public Use
  Company Number: BR-JNJFOC-20160420522

PATIENT
  Age: 66 Year
  Sex: Male

DRUGS (6)
  1. IMBRUVICA [Suspect]
     Active Substance: IBRUTINIB
     Indication: CHRONIC LYMPHOCYTIC LEUKAEMIA
     Route: 048
  2. ARADOIS [Concomitant]
     Active Substance: LOSARTAN POTASSIUM
     Route: 065
  3. IMBRUVICA [Suspect]
     Active Substance: IBRUTINIB
     Indication: CHRONIC LYMPHOCYTIC LEUKAEMIA
     Route: 048
  4. COLCHIS [Concomitant]
     Route: 065
  5. IMBRUVICA [Suspect]
     Active Substance: IBRUTINIB
     Indication: CHRONIC LYMPHOCYTIC LEUKAEMIA
     Route: 048
  6. IMBRUVICA [Suspect]
     Active Substance: IBRUTINIB
     Indication: CHRONIC LYMPHOCYTIC LEUKAEMIA
     Route: 048
     Dates: start: 20160315

REACTIONS (20)
  - Transfusion [Unknown]
  - Hospitalisation [Not Recovered/Not Resolved]
  - Apathy [Unknown]
  - Gout [Not Recovered/Not Resolved]
  - White blood cell count increased [Not Recovered/Not Resolved]
  - Pain [Unknown]
  - Muscle spasms [Unknown]
  - Lung infection [Not Recovered/Not Resolved]
  - Malaise [Unknown]
  - Asthenia [Unknown]
  - Furuncle [Recovered/Resolved]
  - Lymphocyte count increased [Not Recovered/Not Resolved]
  - Hypersensitivity [Unknown]
  - Peripheral swelling [Not Recovered/Not Resolved]
  - Adverse event [Unknown]
  - Arthralgia [Unknown]
  - Swelling [Unknown]
  - Drug ineffective [Unknown]
  - Decreased immune responsiveness [Not Recovered/Not Resolved]
  - Feeling abnormal [Unknown]

NARRATIVE: CASE EVENT DATE: 20160420
